FAERS Safety Report 6149878-4 (Version None)
Quarter: 2009Q2

REPORT INFORMATION
  Report Type: 
  Country: None (occurrence: None)
  Receive Date: 20090409
  Receipt Date: 20090303
  Transmission Date: 20091009
  Serious: Yes (Hospitalization, Other)
  Sender: FDA-Public Use
  Company Number: GB-PFIZER INC-2009172386

PATIENT

DRUGS (6)
  1. SUNITINIB MALATE [Suspect]
     Indication: RENAL CELL CARCINOMA
     Dosage: 37.5 MG, DAILY EVERY DAY
     Route: 048
     Dates: start: 20090122, end: 20090212
  2. AMLODIPINE [Concomitant]
     Dosage: UNK
     Route: 048
  3. LANSOPRAZOLE [Concomitant]
     Dosage: UNK
     Route: 048
  4. CARVEDILOL [Concomitant]
     Dosage: UNK
     Route: 048
  5. CARDIZEM [Concomitant]
     Dosage: UNK
     Route: 048
  6. ASPIRIN [Concomitant]
     Dosage: UNK
     Route: 048

REACTIONS (9)
  - ASPARTATE AMINOTRANSFERASE INCREASED [None]
  - BILIARY DILATATION [None]
  - BLOOD ALKALINE PHOSPHATASE INCREASED [None]
  - BLOOD BILIRUBIN INCREASED [None]
  - BLOOD CREATININE INCREASED [None]
  - FATIGUE [None]
  - GAMMA-GLUTAMYLTRANSFERASE INCREASED [None]
  - HEPATOTOXICITY [None]
  - PLATELET COUNT DECREASED [None]
